FAERS Safety Report 12331467 (Version 3)
Quarter: 2016Q2

REPORT INFORMATION
  Report Type: Spontaneous
  Country: US (occurrence: US)
  Receive Date: 20160504
  Receipt Date: 20160513
  Transmission Date: 20160815
  Serious: Yes (Hospitalization, Other)
  Sender: FDA-Public Use
  Company Number: US-GLAXOSMITHKLINE-US2016055831

PATIENT
  Age: 31 Year
  Sex: Female

DRUGS (18)
  1. BENLYSTA [Suspect]
     Active Substance: BELIMUMAB
     Indication: SYSTEMIC LUPUS ERYTHEMATOSUS
     Dosage: UNK UNK, CYC
     Route: 042
     Dates: start: 20150909
  2. KEPPRA [Concomitant]
     Active Substance: LEVETIRACETAM
  3. PLAQUENIL [Concomitant]
     Active Substance: HYDROXYCHLOROQUINE SULFATE
  4. BACLOFEN. [Concomitant]
     Active Substance: BACLOFEN
  5. PERCOCET [Concomitant]
     Active Substance: ACETAMINOPHEN\OXYCODONE HYDROCHLORIDE
  6. DOXYCYCLINE. [Concomitant]
     Active Substance: DOXYCYCLINE
  7. BENLYSTA [Suspect]
     Active Substance: BELIMUMAB
     Dosage: 1 DF, WE
     Route: 042
     Dates: start: 20150909, end: 20160302
  8. ARMOUR THYROID [Concomitant]
     Active Substance: THYROID, PORCINE
  9. DYRENIUM [Concomitant]
     Active Substance: TRIAMTERENE
  10. NEURONTIN [Concomitant]
     Active Substance: GABAPENTIN
  11. FOLIC ACID. [Concomitant]
     Active Substance: FOLIC ACID
  12. LUNESTA [Concomitant]
     Active Substance: ESZOPICLONE
  13. ZOLOFT [Concomitant]
     Active Substance: SERTRALINE HYDROCHLORIDE
  14. CAMRESE [Concomitant]
     Active Substance: ETHINYL ESTRADIOL\LEVONORGESTREL
  15. METHOTREXATE [Concomitant]
     Active Substance: METHOTREXATE
  16. VITAMIN B12 [Concomitant]
     Active Substance: CYANOCOBALAMIN
  17. INDERAL [Concomitant]
     Active Substance: PROPRANOLOL HYDROCHLORIDE
  18. ZOFRAN [Concomitant]
     Active Substance: ONDANSETRON HYDROCHLORIDE

REACTIONS (36)
  - Blood urine present [Unknown]
  - Temperature intolerance [Unknown]
  - Swelling [Unknown]
  - Nausea [Not Recovered/Not Resolved]
  - Vitamin D deficiency [Not Recovered/Not Resolved]
  - Drug dose omission [Unknown]
  - Lethargy [Recovered/Resolved]
  - Sinusitis [Unknown]
  - Tooth extraction [Unknown]
  - Gingival pain [Unknown]
  - Inflammation [Unknown]
  - Urinary tract infection [Unknown]
  - Decreased appetite [Not Recovered/Not Resolved]
  - Rash [Unknown]
  - Chills [Unknown]
  - Somnolence [Unknown]
  - Adnexa uteri pain [Not Recovered/Not Resolved]
  - Fatigue [Unknown]
  - Drug ineffective [Unknown]
  - Toe operation [Unknown]
  - Arthralgia [Unknown]
  - Kidney infection [Unknown]
  - Malaise [Unknown]
  - Feeling abnormal [Unknown]
  - Blood creatinine increased [Not Recovered/Not Resolved]
  - Localised infection [Unknown]
  - Tooth fracture [Not Recovered/Not Resolved]
  - Renal pain [Unknown]
  - Vomiting [Recovered/Resolved]
  - Migraine [Unknown]
  - Tooth infection [Unknown]
  - Impaired healing [Unknown]
  - Erythema [Unknown]
  - Pain [Unknown]
  - Influenza like illness [Unknown]
  - Insomnia [Not Recovered/Not Resolved]

NARRATIVE: CASE EVENT DATE: 201509
